FAERS Safety Report 23340556 (Version 1)
Quarter: 2023Q4

REPORT INFORMATION
  Report Type: Spontaneous
  Country: CN (occurrence: CN)
  Receive Date: 20231227
  Receipt Date: 20231227
  Transmission Date: 20240110
  Serious: Yes (Hospitalization)
  Sender: FDA-Public Use
  Company Number: CN-SA-SAC20231219000099

PATIENT
  Age: 70 Year
  Sex: Male
  Weight: 65 kg

DRUGS (4)
  1. APIDRA [Suspect]
     Active Substance: INSULIN GLULISINE
     Indication: Respiratory disorder
     Dosage: 6 MG, QD
     Route: 058
     Dates: start: 20231122, end: 20231122
  2. SINTILIMAB [Suspect]
     Active Substance: SINTILIMAB
     Indication: Respiratory disorder
     Dosage: 200 MG, QD
     Route: 041
     Dates: start: 20231121, end: 20231121
  3. DENOSUMAB [Suspect]
     Active Substance: DENOSUMAB
     Indication: Respiratory disorder
     Dosage: 120 MG, QD
     Route: 058
     Dates: start: 20231123, end: 20231123
  4. GRANULOCYTE COLONY-STIMULATING FACTOR NOS [Concomitant]
     Active Substance: GRANULOCYTE COLONY-STIMULATING FACTOR NOS
     Dosage: UNK
     Route: 058
     Dates: start: 20231122

REACTIONS (4)
  - Drug eruption [Recovering/Resolving]
  - Rash pruritic [Recovering/Resolving]
  - Skin exfoliation [Recovering/Resolving]
  - Product use in unapproved indication [Unknown]

NARRATIVE: CASE EVENT DATE: 20231122
